FAERS Safety Report 8004090-9 (Version None)
Quarter: 2011Q4

REPORT INFORMATION
  Report Type: 
  Country: None (occurrence: None)
  Receive Date: 20111222
  Receipt Date: 20111212
  Transmission Date: 20120403
  Serious: Yes (Hospitalization, Other)
  Sender: FDA-Public Use
  Company Number: US-ASTRAZENECA-2011SE50965

PATIENT
  Age: 57 Year
  Sex: Female

DRUGS (8)
  1. NEXIUM [Suspect]
     Route: 048
  2. FELODIPINE [Concomitant]
  3. HYDROCHLOROTHIAZIDE [Concomitant]
  4. LOVASTATIN [Concomitant]
     Dosage: 20 DAILY
  5. ZESTRIL [Suspect]
     Route: 048
  6. NORVASC [Concomitant]
  7. ASPIRIN [Concomitant]
  8. CLARITIN [Concomitant]

REACTIONS (27)
  - CARDIOMEGALY [None]
  - HYPERTENSION [None]
  - OTITIS MEDIA [None]
  - UPPER RESPIRATORY TRACT INFECTION [None]
  - ERYTHEMA [None]
  - OESOPHAGEAL OEDEMA [None]
  - UMBILICAL HERNIA [None]
  - BLOOD CHOLESTEROL INCREASED [None]
  - PAIN IN EXTREMITY [None]
  - COUGH [None]
  - DRUG HYPERSENSITIVITY [None]
  - INAPPROPRIATE SCHEDULE OF DRUG ADMINISTRATION [None]
  - ROAD TRAFFIC ACCIDENT [None]
  - OROPHARYNGEAL PAIN [None]
  - GASTROOESOPHAGEAL REFLUX DISEASE [None]
  - FALL [None]
  - GASTROINTESTINAL INJURY [None]
  - CARDIAC FAILURE CONGESTIVE [None]
  - MUSCLE STRAIN [None]
  - DIZZINESS [None]
  - SPUTUM DISCOLOURED [None]
  - ABDOMINAL HERNIA [None]
  - OBESITY [None]
  - OEDEMA PERIPHERAL [None]
  - BRONCHITIS [None]
  - CONTUSION [None]
  - CELLULITIS [None]
